FAERS Safety Report 4403875-5 (Version None)
Quarter: 2004Q3

REPORT INFORMATION
  Report Type: 
  Country: None (occurrence: None)
  Receive Date: 20040719
  Receipt Date: 20040708
  Transmission Date: 20050211
  Serious: Yes (Hospitalization)
  Sender: FDA-Public Use
  Company Number: 04P-028-0264145-00

PATIENT

DRUGS (2)
  1. VALPROIC ACID [Suspect]
     Dosage: PER ORAL
     Route: 048
  2. CLONIDINE HCL [Concomitant]

REACTIONS (6)
  - DEPRESSED LEVEL OF CONSCIOUSNESS [None]
  - HAEMODIALYSIS [None]
  - HAEMODYNAMIC INSTABILITY [None]
  - HYPOTENSION [None]
  - OVERDOSE [None]
  - THROMBOCYTOPENIA [None]
